FAERS Safety Report 17775572 (Version 1)
Quarter: 2020Q2

REPORT INFORMATION
  Report Type: Report from Study
  Country: AR (occurrence: AR)
  Receive Date: 20200513
  Receipt Date: 20200513
  Transmission Date: 20200714
  Serious: Yes (Life-Threatening, Hospitalization, Other)
  Sender: FDA-Public Use
  Company Number: AR-ROCHE-2593310

PATIENT
  Sex: Female

DRUGS (5)
  1. XOLAIR [Suspect]
     Active Substance: OMALIZUMAB
     Indication: ASTHMA
     Route: 065
     Dates: start: 201810, end: 202001
  2. SERETIDE [Suspect]
     Active Substance: FLUTICASONE PROPIONATE\SALMETEROL XINAFOATE
     Indication: PRODUCT USED FOR UNKNOWN INDICATION
     Route: 065
  3. XOLAIR [Suspect]
     Active Substance: OMALIZUMAB
     Route: 065
     Dates: start: 20180123
  4. THYROXINE [Concomitant]
     Active Substance: LEVOTHYROXINE
     Indication: PRODUCT USED FOR UNKNOWN INDICATION
     Dosage: 50 UG, QD EVERY MORNING
     Route: 065
  5. THYROXINE [Concomitant]
     Active Substance: LEVOTHYROXINE
     Dosage: 100 UG, QD EVERY MORNING
     Route: 005

REACTIONS (12)
  - Drug intolerance [Unknown]
  - Colitis [Unknown]
  - Syncope [Recovering/Resolving]
  - Vomiting [Recovering/Resolving]
  - Dyspnoea [Not Recovered/Not Resolved]
  - Cardiomegaly [Unknown]
  - Pruritus [Not Recovered/Not Resolved]
  - Dizziness [Recovering/Resolving]
  - Feeling abnormal [Unknown]
  - Swelling [Recovering/Resolving]
  - General physical health deterioration [Unknown]
  - Muscle spasms [Recovering/Resolving]

NARRATIVE: CASE EVENT DATE: 201810
